FAERS Safety Report 17172927 (Version 1)
Quarter: 2019Q4

REPORT INFORMATION
  Report Type: Report from Study
  Country: DE (occurrence: DE)
  Receive Date: 20191218
  Receipt Date: 20191218
  Transmission Date: 20200122
  Serious: Yes (Hospitalization, Other)
  Sender: FDA-Public Use
  Company Number: DE-BIOGEN-2019BI00816219

PATIENT
  Sex: Male

DRUGS (1)
  1. TECFIDERA [Suspect]
     Active Substance: DIMETHYL FUMARATE
     Indication: MULTIPLE SCLEROSIS
     Route: 048
     Dates: start: 20140215, end: 201801

REACTIONS (6)
  - Spinal column injury [Unknown]
  - Tooth disorder [Unknown]
  - Osteomyelitis bacterial [Recovered/Resolved with Sequelae]
  - Spinal compression fracture [Unknown]
  - Decreased immune responsiveness [Unknown]
  - Intervertebral disc degeneration [Recovered/Resolved with Sequelae]

NARRATIVE: CASE EVENT DATE: 2017
